FAERS Safety Report 8540591-2 (Version None)
Quarter: 2012Q3

REPORT INFORMATION
  Report Type: 
  Country: None (occurrence: None)
  Receive Date: 20120726
  Receipt Date: 20120723
  Transmission Date: 20120928
  Serious: Yes (Death, Hospitalization)
  Sender: FDA-Public Use
  Company Number: US-CELGENEUS-163-21880-12072399

PATIENT
  Sex: Female
  Weight: 56.75 kg

DRUGS (5)
  1. MYLERAN [Concomitant]
     Dosage: 2 MILLIGRAM
     Route: 065
     Dates: start: 20120313, end: 20120415
  2. PRILOSEC [Concomitant]
     Dosage: 20 MILLIGRAM
     Route: 065
  3. REVLIMID [Suspect]
     Dosage: 10 MILLIGRAM
     Route: 048
     Dates: start: 20120520
  4. ZYRTEC [Concomitant]
     Dosage: 10 MILLIGRAM
     Route: 065
     Dates: start: 20120310, end: 20120317
  5. METFORMIN HYDROCHLORIDE [Concomitant]
     Indication: TYPE 2 DIABETES MELLITUS
     Dosage: 500 MILLIGRAM
     Route: 065
     Dates: start: 20100101

REACTIONS (2)
  - PYREXIA [None]
  - ACUTE MYELOID LEUKAEMIA [None]
